FAERS Safety Report 8921401 (Version 1)
Quarter: 2012Q4

REPORT INFORMATION
  Report Type: 
  Country: BR (occurrence: BR)
  Receive Date: 20121122
  Receipt Date: 20121122
  Transmission Date: 20130627
  Serious: Yes (Death, Hospitalization, Other)
  Sender: FDA-Public Use
  Company Number: PHHY2012BR105513

PATIENT
  Sex: Male
  Weight: 70 kg

DRUGS (5)
  1. GALVUS [Suspect]
     Indication: DIABETES MELLITUS
     Dosage: 50 mg, QD (in the morning)
     Route: 048
  2. DIOVAN AMLO [Suspect]
     Indication: HYPERTENSION
     Dosage: 1 DF (320 mg vals and 5 mg amlo), daily
     Route: 048
  3. LANTOS INSULIN [Concomitant]
     Indication: DIABETES MELLITUS
     Dosage: 18 IU, daily
     Route: 058
  4. GLIFAGE XR [Concomitant]
     Indication: DIABETES MELLITUS
     Dosage: 1 DF, daily
     Route: 048
  5. SIMVASTATIN [Concomitant]
     Indication: CARDIAC DISORDER
     Dosage: 1 DF, daily
     Route: 048

REACTIONS (2)
  - Gastrointestinal infection [Fatal]
  - Respiratory disorder [Fatal]
